FAERS Safety Report 5899129-0 (Version None)
Quarter: 2008Q3

REPORT INFORMATION
  Report Type: 
  Country: None (occurrence: None)
  Receive Date: 20080925
  Receipt Date: 20080909
  Transmission Date: 20090109
  Serious: No
  Sender: FDA-Public Use
  Company Number: US-B.I. PHARMACEUTICALS,INC./RIDGEFIELD-2008-BP-14280BP

PATIENT
  Sex: Male

DRUGS (9)
  1. FLOMAX [Suspect]
     Indication: BENIGN PROSTATIC HYPERPLASIA
     Dosage: .4MG
     Route: 048
     Dates: start: 20060101
  2. ADVAIR DISKUS 100/50 [Concomitant]
  3. SINGULAIR [Concomitant]
  4. SYNTHROID [Concomitant]
  5. MEDROL [Concomitant]
  6. ALBUTEROL [Concomitant]
  7. LORAZEPAM [Concomitant]
  8. VIAGRA [Concomitant]
  9. NEXIUM [Concomitant]

REACTIONS (1)
  - SOMNOLENCE [None]
